FAERS Safety Report 6938024-2 (Version None)
Quarter: 2010Q3

REPORT INFORMATION
  Report Type: 
  Country: None (occurrence: None)
  Receive Date: 20100824
  Receipt Date: 20100811
  Transmission Date: 20110219
  Serious: Yes (Hospitalization)
  Sender: FDA-Public Use
  Company Number: US-ELI_LILLY_AND_COMPANY-US201003001868

PATIENT
  Sex: Female

DRUGS (14)
  1. FORTEO [Suspect]
     Indication: OSTEOPOROSIS
     Dosage: 20 UG, DAILY (1/D)
     Route: 065
     Dates: start: 20091004
  2. FORTEO [Suspect]
     Dosage: 20 UG, DAILY (1/D)
     Dates: end: 20100507
  3. LEVOTHYROXINE SODIUM [Concomitant]
     Indication: THYROID DISORDER
     Dosage: 75 UG, DAILY (1/D)
  4. LEVOTHYROXINE SODIUM [Concomitant]
     Dosage: 0.5 D/F, WEEKLY (1/W)
     Dates: start: 20090101
  5. CALCIUM [Concomitant]
  6. METHADONE [Concomitant]
     Dosage: 5 MG, 3/D
  7. LISINOPRIL [Concomitant]
     Dosage: 40 MG, DAILY (1/D)
  8. PLAVIX [Concomitant]
     Dosage: 75 MG, DAILY (1/D)
  9. ATENOLOL [Concomitant]
     Dosage: 50 MG, 2/D
  10. CYMBALTA [Concomitant]
     Dosage: 30 MG, 2-3/DAY
  11. NEXIUM [Concomitant]
     Dosage: 40 MG, DAILY (1/D)
  12. BACLOFEN [Concomitant]
     Dosage: 10 MG, 2/D
  13. DYAZIDE [Concomitant]
     Dosage: 36.5/25
  14. PROVIGIL [Concomitant]
     Dosage: UNK, DAILY (1/D)

REACTIONS (10)
  - BLOOD CALCIUM INCREASED [None]
  - BLOOD MAGNESIUM DECREASED [None]
  - DEHYDRATION [None]
  - DRUG DOSE OMISSION [None]
  - DRY MOUTH [None]
  - MUSCULAR WEAKNESS [None]
  - POST POLIO SYNDROME [None]
  - SOMNOLENCE [None]
  - THERAPY REGIMEN CHANGED [None]
  - VITAMIN D ABNORMAL [None]
